FAERS Safety Report 13029097 (Version 2)
Quarter: 2018Q2

REPORT INFORMATION
  Report Type: Report from Study
  Country: US (occurrence: US)
  Receive Date: 20161215
  Receipt Date: 20180409
  Transmission Date: 20180711
  Serious: Yes (Other)
  Sender: FDA-Public Use
  Company Number: US-ROCHE-1866546

PATIENT
  Sex: Female

DRUGS (2)
  1. LUCENTIS [Suspect]
     Active Substance: RANIBIZUMAB
     Indication: CHOROIDAL NEOVASCULARISATION
  2. LUCENTIS [Suspect]
     Active Substance: RANIBIZUMAB
     Indication: NEOVASCULAR AGE-RELATED MACULAR DEGENERATION
     Dosage: ONGOING:YES
     Route: 050
     Dates: start: 2016

REACTIONS (9)
  - Fatigue [Unknown]
  - Retinal haemorrhage [Unknown]
  - Ill-defined disorder [Unknown]
  - Hypoacusis [Unknown]
  - Fall [Unknown]
  - Pain [Unknown]
  - Blindness unilateral [Unknown]
  - Injury [Unknown]
  - Vision blurred [Unknown]
